FAERS Safety Report 17124764 (Version 3)
Quarter: 2020Q4

REPORT INFORMATION
  Report Type: Spontaneous
  Country: BR (occurrence: BR)
  Receive Date: 20191206
  Receipt Date: 20201030
  Transmission Date: 20210113
  Serious: Yes (Hospitalization, Other)
  Sender: FDA-Public Use
  Company Number: NVSC2019BR057658

PATIENT
  Age: 76 Year
  Sex: Male
  Weight: 73 kg

DRUGS (7)
  1. FITOCOR [Suspect]
     Active Substance: PHYTOSTEROLS
     Indication: PRODUCT USED FOR UNKNOWN INDICATION
     Dosage: 1 DF, BID
     Route: 065
  2. DIOVAN HCT [Suspect]
     Active Substance: HYDROCHLOROTHIAZIDE\VALSARTAN
     Dosage: 1 DF (160/12.5 MG)
     Route: 065
  3. VALSARTAN + HCT [Suspect]
     Active Substance: HYDROCHLOROTHIAZIDE\VALSARTAN
     Indication: PRODUCT USED FOR UNKNOWN INDICATION
     Dosage: UNK
     Route: 065
  4. DOMPERIDONE [Suspect]
     Active Substance: DOMPERIDONE
     Indication: PRODUCT USED FOR UNKNOWN INDICATION
     Dosage: 1 DF, BID
     Route: 065
  5. SOMALGIN CARDIO [Suspect]
     Active Substance: ASPIRIN\DIHYDROXYALUMINUM AMINOACETATE ANHYDROUS\MAGNESIUM CARBONATE
     Indication: PRODUCT USED FOR UNKNOWN INDICATION
     Dosage: 1 DF, QD
     Route: 065
  6. DIOVAN HCT [Suspect]
     Active Substance: HYDROCHLOROTHIAZIDE\VALSARTAN
     Indication: HYPERTENSION
     Dosage: 1 DF (320/25 MG)
     Route: 048
     Dates: start: 20181008, end: 20181115
  7. DIOVAN [Suspect]
     Active Substance: VALSARTAN
     Indication: PRODUCT USED FOR UNKNOWN INDICATION
     Dosage: 1 DF, QD
     Route: 065

REACTIONS (20)
  - Malaise [Not Recovered/Not Resolved]
  - Cholelithiasis [Unknown]
  - Lymphadenopathy [Unknown]
  - Influenza [Not Recovered/Not Resolved]
  - Intervertebral disc degeneration [Unknown]
  - Cerebrovascular accident [Not Recovered/Not Resolved]
  - Cerebral disorder [Not Recovered/Not Resolved]
  - White blood cell count increased [Not Recovered/Not Resolved]
  - Blood lactate dehydrogenase increased [Unknown]
  - Bladder hypertrophy [Unknown]
  - Immunodeficiency [Not Recovered/Not Resolved]
  - Benign prostatic hyperplasia [Not Recovered/Not Resolved]
  - Chronic lymphocytic leukaemia [Not Recovered/Not Resolved]
  - Jugular vein occlusion [Unknown]
  - Aortic arteriosclerosis [Unknown]
  - Carotid arteriosclerosis [Unknown]
  - Chills [Not Recovered/Not Resolved]
  - Headache [Not Recovered/Not Resolved]
  - Bone pain [Not Recovered/Not Resolved]
  - Parotid gland enlargement [Unknown]

NARRATIVE: CASE EVENT DATE: 20181009
